APPROVED DRUG PRODUCT: DERMABET
Active Ingredient: BETAMETHASONE VALERATE
Strength: EQ 0.1% BASE
Dosage Form/Route: CREAM;TOPICAL
Application: A072041 | Product #001 | TE Code: AB
Applicant: SUN PHARMA CANADA INC
Approved: Jan 6, 1988 | RLD: No | RS: No | Type: RX